FAERS Safety Report 8897611 (Version 1)
Quarter: 2012Q4

REPORT INFORMATION
  Report Type: 
  Country: US (occurrence: US)
  Receive Date: 20121108
  Receipt Date: 20121108
  Transmission Date: 20130627
  Serious: No
  Sender: FDA-Public Use
  Company Number: US-AMGEN-USASP2012028852

PATIENT
  Age: 58 Year
  Sex: Female

DRUGS (11)
  1. ENBREL [Suspect]
     Indication: PRODUCT USED FOR UNKNOWN INDICATION
     Dosage: 50 mg, qwk
     Route: 058
  2. FLEXERIL                           /00428402/ [Concomitant]
     Dosage: 10 mg, UNK
  3. COZAAR [Concomitant]
     Dosage: 50 mg, UNK
  4. XANAX [Concomitant]
     Dosage: 0.25 mg, UNK
  5. PLAQUENIL                          /00072602/ [Concomitant]
     Dosage: 200 mg, UNK
  6. AMARYL [Concomitant]
     Dosage: 1 mg, UNK
  7. INDERAL LA [Concomitant]
     Dosage: 120 mg, UNK
  8. METHOTREXATE [Concomitant]
     Dosage: 2.5 mg, UNK
  9. CARAFATE [Concomitant]
     Dosage: 1 g, UNK
  10. CLONIDINE [Concomitant]
     Dosage: 0.1 mg, UNK
  11. OXYMORPHONE [Concomitant]
     Dosage: 15 mg, UNK

REACTIONS (1)
  - Urinary tract infection [Unknown]
